FAERS Safety Report 17096852 (Version 1)
Quarter: 2019Q4

REPORT INFORMATION
  Report Type: Spontaneous
  Country: US (occurrence: US)
  Receive Date: 20191202
  Receipt Date: 20191202
  Transmission Date: 20200122
  Serious: No
  Sender: FDA-Public Use
  Company Number: US-GLAXOSMITHKLINE-US2019GSK214189

PATIENT
  Age: 27 Year
  Sex: Male
  Weight: 1 kg

DRUGS (2)
  1. NICODERM CQ [Suspect]
     Active Substance: NICOTINE
     Dosage: UNK (PUT IT ON ABOUT 430)
     Route: 065
  2. NICODERM CQ [Suspect]
     Active Substance: NICOTINE
     Indication: PRODUCT USED FOR UNKNOWN INDICATION
     Dosage: 21 MG
     Route: 065
     Dates: start: 20191125, end: 20191125

REACTIONS (1)
  - Application site erosion [Recovering/Resolving]

NARRATIVE: CASE EVENT DATE: 20191125
